FAERS Safety Report 20996587 (Version 1)
Quarter: 2022Q2

REPORT INFORMATION
  Report Type: Spontaneous
  Country: EG (occurrence: EG)
  Receive Date: 20220623
  Receipt Date: 20220623
  Transmission Date: 20220721
  Serious: Yes (Death, Congenital Anomaly)
  Sender: FDA-Public Use
  Company Number: EG-NOVOPROD-928231

PATIENT
  Sex: Female

DRUGS (3)
  1. INSULIN HUMAN [Suspect]
     Active Substance: INSULIN HUMAN
     Indication: Diabetes mellitus
     Dosage: 105 IU, QD (55U AT MORNING AND 50U AT NIGHT)
     Route: 064
  2. INSULIN HUMAN [Suspect]
     Active Substance: INSULIN HUMAN
     Indication: Diabetes mellitus
     Dosage: UNK
     Route: 064
  3. JUSPRIN [Concomitant]
     Indication: Anticoagulant therapy
     Dosage: 2 TAB/DAY ~FROM 6 YEARS AND STOPPED AFTER 8 MONTHS OF USAGE
     Route: 064

REACTIONS (2)
  - Heart disease congenital [Fatal]
  - Foetal exposure during pregnancy [Recovered/Resolved]
